FAERS Safety Report 13104039 (Version 1)
Quarter: 2017Q1

REPORT INFORMATION
  Report Type: Report from Study
  Country: FR (occurrence: FR)
  Receive Date: 20170111
  Receipt Date: 20170111
  Transmission Date: 20170428
  Serious: Yes (Other)
  Sender: FDA-Public Use
  Company Number: PHHY2016FR020111

PATIENT
  Age: 52 Year
  Sex: Male

DRUGS (6)
  1. CERTICAN [Suspect]
     Active Substance: EVEROLIMUS
     Indication: LIVER TRANSPLANT
     Dosage: 2 MG, QD
     Route: 048
     Dates: start: 20130718, end: 20131030
  2. BACLOFENE [Concomitant]
     Active Substance: BACLOFEN
     Indication: ALCOHOL USE
     Dosage: UNK
     Route: 065
     Dates: start: 20130720
  3. MYFORTIC [Suspect]
     Active Substance: MYCOPHENOLATE SODIUM
     Indication: IMMUNOSUPPRESSANT DRUG THERAPY
     Dosage: 1440 MG, QD
     Route: 065
     Dates: start: 20130223
  4. ADVAGRAF [Suspect]
     Active Substance: TACROLIMUS
     Indication: IMMUNOSUPPRESSANT DRUG THERAPY
     Dosage: 1 MG, QD
     Route: 065
     Dates: start: 20130322, end: 20131030
  5. ADVAGRAF [Suspect]
     Active Substance: TACROLIMUS
     Dosage: 2 MG, QD
     Route: 065
     Dates: start: 20131031
  6. CERTICAN [Suspect]
     Active Substance: EVEROLIMUS
     Indication: IMMUNOSUPPRESSANT DRUG THERAPY

REACTIONS (2)
  - Peripheral arterial occlusive disease [Recovering/Resolving]
  - Deep vein thrombosis [Recovered/Resolved]

NARRATIVE: CASE EVENT DATE: 20151013
